FAERS Safety Report 6721440-1 (Version None)
Quarter: 2010Q2

REPORT INFORMATION
  Report Type: 
  Country: None (occurrence: None)
  Receive Date: 20100512
  Receipt Date: 20100507
  Transmission Date: 20101027
  Serious: Yes (Other)
  Sender: FDA-Public Use
  Company Number: US-BRISTOL-MYERS SQUIBB COMPANY-15096514

PATIENT
  Sex: Female

DRUGS (7)
  1. PRAVACHOL [Suspect]
  2. COUMADIN [Suspect]
     Indication: INTRACARDIAC THROMBUS
     Dates: start: 20100401
  3. PLAVIX [Suspect]
     Indication: STENT PLACEMENT
     Dates: start: 20060101
  4. PLAVIX [Suspect]
     Indication: MYOCARDIAL INFARCTION
     Dates: start: 20060101
  5. PLAVIX [Suspect]
     Indication: ATRIOVENTRICULAR BLOCK
     Dates: start: 20060101
  6. ASPIRIN [Suspect]
  7. NIASPAN [Suspect]

REACTIONS (2)
  - INTERNATIONAL NORMALISED RATIO FLUCTUATION [None]
  - INTRACARDIAC THROMBUS [None]
